FAERS Safety Report 5926331-1 (Version None)
Quarter: 2008Q4

REPORT INFORMATION
  Report Type: 
  Country: None (occurrence: None)
  Receive Date: 20081017
  Receipt Date: 20081001
  Transmission Date: 20090506
  Serious: Yes (Hospitalization)
  Sender: FDA-Public Use
  Company Number: US024797

PATIENT
  Age: 67 Year
  Sex: Male
  Weight: 62 kg

DRUGS (5)
  1. ARSENIC TRIOXIDE [Suspect]
     Indication: MYELODYSPLASTIC SYNDROME
     Dosage: 15 MG TWO TIMES PER WEEK (3 CYCLES) INTRAVENOUS DRIP
     Route: 041
     Dates: start: 20080723, end: 20080808
  2. ARSENIC TRIOXIDE [Suspect]
     Indication: MYELODYSPLASTIC SYNDROME
     Dosage: (4TH CYCLE) INTRAVENOUS DRIP
     Route: 041
     Dates: start: 20080902, end: 20080910
  3. MEPRAL /00661201/ [Concomitant]
  4. ZELITREX /01269701/ [Concomitant]
  5. NEUPOGEN [Concomitant]

REACTIONS (3)
  - BRONCHOPNEUMONIA [None]
  - OBSTRUCTIVE AIRWAYS DISORDER [None]
  - RESPIRATORY DEPRESSION [None]
